FAERS Safety Report 16809257 (Version 1)
Quarter: 2019Q4

REPORT INFORMATION
  Report Type: Spontaneous
  Country: US (occurrence: US)
  Receive Date: 20190914
  Receipt Date: 20190914
  Transmission Date: 20200122
  Serious: No
  Sender: FDA-Public Use
  Company Number: None

PATIENT
  Age: 2 Year
  Sex: Male
  Weight: 13 kg

DRUGS (1)
  1. FENTYNAL NASAL SPRAY [Suspect]
     Active Substance: FENTANYL
     Indication: PROCEDURAL PAIN
     Dosage: ?          QUANTITY:1 SPRAY(S);?
     Route: 055
     Dates: start: 20190913, end: 20190913

REACTIONS (2)
  - Product administered to patient of inappropriate age [None]
  - Device use issue [None]

NARRATIVE: CASE EVENT DATE: 20190913
